FAERS Safety Report 21505360 (Version 5)
Quarter: 2023Q1

REPORT INFORMATION
  Report Type: Report from Study
  Country: US (occurrence: US)
  Receive Date: 20221026
  Receipt Date: 20230209
  Transmission Date: 20230418
  Serious: Yes (Other)
  Sender: FDA-Public Use
  Company Number: US-ABBVIE-4172164

PATIENT
  Sex: Female
  Weight: 96 kg

DRUGS (2)
  1. HUMIRA [Suspect]
     Active Substance: ADALIMUMAB
     Indication: Rheumatoid arthritis
     Dosage: CITRATE FREE
     Route: 058
     Dates: start: 202106
  2. HUMIRA [Suspect]
     Active Substance: ADALIMUMAB

REACTIONS (9)
  - Basal cell carcinoma [Recovering/Resolving]
  - Skin exfoliation [Recovering/Resolving]
  - Post procedural swelling [Recovering/Resolving]
  - Oropharyngeal discomfort [Unknown]
  - Productive cough [Recovered/Resolved]
  - COVID-19 [Recovered/Resolved]
  - Urinary incontinence [Not Recovered/Not Resolved]
  - Inflammation [Recovered/Resolved]
  - Post procedural erythema [Recovering/Resolving]

NARRATIVE: CASE EVENT DATE: 20220101
